FAERS Safety Report 24908887 (Version 1)
Quarter: 2025Q1

REPORT INFORMATION
  Report Type: Spontaneous
  Country: US (occurrence: US)
  Receive Date: 20250131
  Receipt Date: 20250131
  Transmission Date: 20250408
  Serious: No
  Sender: AMGEN
  Company Number: US-AMGEN-USASP2025018518

PATIENT
  Age: 71 Year
  Sex: Female

DRUGS (1)
  1. REPATHA [Suspect]
     Active Substance: EVOLOCUMAB
     Indication: Product used for unknown indication
     Route: 058

REACTIONS (5)
  - Dysphonia [Unknown]
  - Sinus disorder [Unknown]
  - Blood glucose increased [Unknown]
  - Accidental exposure to product [Unknown]
  - Drug dose omission by device [Unknown]

NARRATIVE: CASE EVENT DATE: 20241210
